FAERS Safety Report 10161129 (Version 1)
Quarter: 2014Q2

REPORT INFORMATION
  Report Type: Spontaneous
  Country: US (occurrence: US)
  Receive Date: 20140508
  Receipt Date: 20140508
  Transmission Date: 20141212
  Serious: Yes (Hospitalization)
  Sender: FDA-Public Use
  Company Number: US-ABBVIE-14P-163-1233417-00

PATIENT
  Sex: Male
  Weight: 78.54 kg

DRUGS (5)
  1. ANDROGEL [Suspect]
     Indication: BLOOD TESTOSTERONE DECREASED
     Dates: start: 20130124, end: 201309
  2. CYMBALTA [Concomitant]
     Indication: PRODUCT USED FOR UNKNOWN INDICATION
  3. RANEXA [Concomitant]
     Indication: URINARY INCONTINENCE
  4. LIPITOR [Concomitant]
     Indication: HYPERLIPIDAEMIA
  5. BABY ASPIRIN [Concomitant]
     Indication: PRODUCT USED FOR UNKNOWN INDICATION

REACTIONS (4)
  - Sleep terror [Recovered/Resolved]
  - Mental status changes [Recovering/Resolving]
  - Personality change [Recovered/Resolved]
  - Dementia Alzheimer^s type [Not Recovered/Not Resolved]
